FAERS Safety Report 12859476 (Version 1)
Quarter: 2016Q4

REPORT INFORMATION
  Report Type: Spontaneous
  Country: US (occurrence: US)
  Receive Date: 20161018
  Receipt Date: 20161018
  Transmission Date: 20170207
  Serious: Yes (Hospitalization)
  Sender: FDA-Public Use
  Company Number: CA-MEDA-2016100068

PATIENT
  Sex: Male

DRUGS (1)
  1. CESAMET [Suspect]
     Active Substance: NABILONE
     Indication: TESTICULAR PAIN
     Route: 048

REACTIONS (2)
  - Surgery [Unknown]
  - Off label use [Recovered/Resolved]
